FAERS Safety Report 4294774-0 (Version None)
Quarter: 2004Q1

REPORT INFORMATION
  Report Type: 
  Country: None (occurrence: None)
  Receive Date: 20040213
  Receipt Date: 20021101
  Transmission Date: 20041129
  Serious: Yes (Hospitalization)
  Sender: FDA-Public Use
  Company Number: WAES 0211FIN00001

PATIENT
  Age: 63 Year
  Sex: Female

DRUGS (12)
  1. ACETAMINOPHEN [Concomitant]
     Indication: BACK PAIN
     Route: 048
     Dates: end: 20020925
  2. ALBUTEROL SULFATE [Concomitant]
     Indication: ASTHMA
  3. ESOMEPRAZOLE MAGNESIUM [Suspect]
     Indication: GASTROOESOPHAGEAL REFLUX DISEASE
     Route: 048
     Dates: end: 20020925
  4. ESOMEPRAZOLE MAGNESIUM [Suspect]
  5. ESTRADIOL VALERATE [Concomitant]
     Indication: POSTMENOPAUSE
     Route: 048
  6. FEXOFENADINE HYDROCHLORIDE [Concomitant]
     Indication: RHINITIS ALLERGIC
  7. FLUTICASONE PROPIONATE [Concomitant]
     Indication: ASTHMA
  8. PROGESTERONE [Suspect]
     Indication: POSTMENOPAUSE
     Dates: start: 20020601, end: 20020601
  9. PROGESTERONE [Suspect]
     Dates: start: 20020801, end: 20020801
  10. VIOXX [Suspect]
     Indication: BACK PAIN
     Route: 048
     Dates: start: 20020810, end: 20020815
  11. VIOXX [Suspect]
     Route: 048
     Dates: start: 20020701, end: 20020801
  12. ZOLMITRIPTAN [Concomitant]

REACTIONS (4)
  - CHILLS [None]
  - COAGULATION TIME PROLONGED [None]
  - HEPATIC HAEMATOMA [None]
  - HEPATITIS TOXIC [None]
